FAERS Safety Report 7988573-3 (Version None)
Quarter: 2011Q4

REPORT INFORMATION
  Report Type: 
  Country: None (occurrence: None)
  Receive Date: 20111218
  Receipt Date: 20070420
  Transmission Date: 20120403
  Serious: Yes (Other)
  Sender: FDA-Public Use
  Company Number: PHHY2007BR011425

PATIENT
  Age: 63 Year
  Sex: Female

DRUGS (1)
  1. EXFORGE [Suspect]
     Dosage: 80/5 MG

REACTIONS (1)
  - BLOOD PRESSURE INCREASED [None]
